FAERS Safety Report 18617014 (Version 1)
Quarter: 2020Q4

REPORT INFORMATION
  Report Type: Spontaneous
  Country: FR (occurrence: FR)
  Receive Date: 20201215
  Receipt Date: 20201215
  Transmission Date: 20210114
  Serious: Yes (Other)
  Sender: FDA-Public Use
  Company Number: FR-ACCORD-211077

PATIENT
  Age: 76 Year
  Sex: Male

DRUGS (7)
  1. BASILIXIMAB [Suspect]
     Active Substance: BASILIXIMAB
     Indication: IMMUNOSUPPRESSION
  2. VALGANCICLOVIR/VALGANCICLOVIR HYDROCHLORIDE [Concomitant]
     Active Substance: VALGANCICLOVIR
     Indication: PROPHYLAXIS
  3. METHYLPREDNISOLONE. [Suspect]
     Active Substance: METHYLPREDNISOLONE
     Indication: IMMUNOSUPPRESSION
     Dosage: LOWERED TO 5 MG
  4. MARIBAVIR [Concomitant]
     Active Substance: MARIBAVIR
  5. MYCOPHENOLIC ACID. [Suspect]
     Active Substance: MYCOPHENOLIC ACID
     Indication: IMMUNOSUPPRESSION
     Dosage: DOSE REDUCED TO 600 MG X 2/DAY
  6. BELATACEPT [Suspect]
     Active Substance: BELATACEPT
     Indication: IMMUNOSUPPRESSION
     Dosage: DAY 0, DAY 15, DAY 30, THEN EVERY MONTH
     Dates: start: 201202
  7. FOSCARNET [Concomitant]
     Active Substance: FOSCARNET
     Dosage: 6 G/ 250 ML; 0.1 ML TWICE A WEEK OVER 2 WEEKS, THEN 1 PER WEEK OVER 6 WEEKS

REACTIONS (2)
  - Cytomegalovirus chorioretinitis [Recovering/Resolving]
  - Cytomegalovirus infection reactivation [Recovered/Resolved]
